FAERS Safety Report 6590492-4 (Version None)
Quarter: 2010Q1

REPORT INFORMATION
  Report Type: 
  Country: None (occurrence: None)
  Receive Date: 20100219
  Receipt Date: 20100209
  Transmission Date: 20100710
  Serious: Yes (Hospitalization)
  Sender: FDA-Public Use
  Company Number: FR-ELI_LILLY_AND_COMPANY-FR200911006960

PATIENT
  Age: 43 Year
  Sex: Male

DRUGS (4)
  1. ZYPREXA [Suspect]
     Indication: SCHIZOPHRENIA
     Dosage: 20 MG, DAILY (1/D)
     Route: 048
     Dates: start: 20090701
  2. HALDOL [Concomitant]
     Indication: SCHIZOPHRENIA
     Dosage: 2.5 MG, DAILY (1/D)
     Route: 048
     Dates: start: 20091001
  3. TERCIAN [Concomitant]
     Indication: SCHIZOPHRENIA
     Dosage: 300 MG, DAILY (1/D)
     Route: 048
     Dates: start: 20090901
  4. VALIUM [Concomitant]
     Indication: SCHIZOPHRENIA
     Dosage: 10 MG, DAILY (1/D)
     Route: 048
     Dates: start: 20090601

REACTIONS (1)
  - PULMONARY EMBOLISM [None]
